FAERS Safety Report 13379836 (Version 3)
Quarter: 2017Q2

REPORT INFORMATION
  Report Type: Spontaneous
  Country: JP (occurrence: JP)
  Receive Date: 20170328
  Receipt Date: 20170627
  Transmission Date: 20170830
  Serious: Yes (Other)
  Sender: FDA-Public Use
  Company Number: JP-ELI_LILLY_AND_COMPANY-JP201703009959

PATIENT
  Age: 68 Year
  Sex: Male

DRUGS (3)
  1. 5-FU                               /00098801/ [Concomitant]
     Active Substance: FLUOROURACIL
     Indication: HYPOPHARYNGEAL CANCER
     Dosage: UNK UNK, UNKNOWN
     Route: 042
     Dates: start: 20141209
  2. ERBITUX [Suspect]
     Active Substance: CETUXIMAB
     Indication: HYPOPHARYNGEAL CANCER
     Dosage: UNK UNK, UNKNOWN
     Route: 042
     Dates: start: 20141209, end: 20150220
  3. CDDP [Suspect]
     Active Substance: CISPLATIN
     Indication: HYPOPHARYNGEAL CANCER
     Dosage: UNK UNK, UNKNOWN
     Route: 042
     Dates: start: 20141209, end: 20141209

REACTIONS (4)
  - Platelet count decreased [Recovered/Resolved]
  - Hyperkalaemia [Recovered/Resolved]
  - White blood cell count decreased [Recovered/Resolved]
  - Renal impairment [Recovered/Resolved]

NARRATIVE: CASE EVENT DATE: 20141211
